FAERS Safety Report 7823567-X (Version None)
Quarter: 2011Q4

REPORT INFORMATION
  Report Type: 
  Country: None (occurrence: None)
  Receive Date: 20111019
  Receipt Date: 20111011
  Transmission Date: 20120403
  Serious: Yes (Hospitalization, Other)
  Sender: FDA-Public Use
  Company Number: GB-UCBSA-042208

PATIENT
  Age: 47 Year
  Sex: Female

DRUGS (3)
  1. CIMZIA [Suspect]
     Dosage: 400 MG
     Route: 058
     Dates: start: 20110901
  2. METHOTREXATE [Concomitant]
     Dosage: 20 MG
  3. F ACID [Concomitant]
     Dosage: 5 MG

REACTIONS (8)
  - PHARYNGEAL OEDEMA [None]
  - SWELLING FACE [None]
  - ANAPHYLACTIC REACTION [None]
  - EYE SWELLING [None]
  - PRURITUS [None]
  - OEDEMA MOUTH [None]
  - DYSPNOEA [None]
  - LOCAL SWELLING [None]
